FAERS Safety Report 5415268-2 (Version None)
Quarter: 2007Q3

REPORT INFORMATION
  Report Type: 
  Country: None (occurrence: None)
  Receive Date: 20070815
  Receipt Date: 20070809
  Transmission Date: 20080115
  Serious: Yes (Hospitalization)
  Sender: FDA-Public Use
  Company Number: FR-ELI_LILLY_AND_COMPANY-FR200704002241

PATIENT
  Age: 69 Year
  Sex: Female

DRUGS (4)
  1. FORTEO [Suspect]
     Indication: OSTEOPOROSIS
     Dosage: 20 UG, DAILY (1/D)
     Route: 058
     Dates: start: 20061030
  2. KARDEGIC [Concomitant]
     Dosage: 1 D/F, DAILY (1/D)
  3. COVERSYL [Concomitant]
     Dosage: 1 D/F, DAILY (1/D)
  4. EZETROL [Concomitant]
     Indication: HYPERCHOLESTEROLAEMIA
     Dosage: 1 D/F, DAILY (1/D)

REACTIONS (4)
  - ANAEMIA [None]
  - CONSTIPATION [None]
  - UTERINE PROLAPSE [None]
  - WEIGHT INCREASED [None]
